FAERS Safety Report 6769731-2 (Version None)
Quarter: 2010Q2

REPORT INFORMATION
  Report Type: 
  Country: None (occurrence: None)
  Receive Date: 20100615
  Receipt Date: 20100603
  Transmission Date: 20101027
  Serious: Yes (Other)
  Sender: FDA-Public Use
  Company Number: PHHY2010JP34319

PATIENT
  Age: 70 Year
  Sex: Female

DRUGS (4)
  1. TEGRETOL [Suspect]
     Indication: TRIGEMINAL NEURALGIA
     Dosage: 100 MG, QD
     Route: 048
     Dates: end: 20100427
  2. TEGRETOL [Suspect]
     Dosage: 200 MG, QD
     Route: 048
     Dates: start: 20100428, end: 20100530
  3. TEGRETOL [Suspect]
     Dosage: 100 MG, PRN
     Route: 048
     Dates: start: 20100531
  4. ASPIRIN [Concomitant]
     Route: 048

REACTIONS (2)
  - DYSKINESIA [None]
  - PARKINSON'S DISEASE [None]
